FAERS Safety Report 13962491 (Version 2)
Quarter: 2018Q1

REPORT INFORMATION
  Report Type: Spontaneous
  Country: MX (occurrence: MX)
  Receive Date: 20170913
  Receipt Date: 20180226
  Transmission Date: 20180508
  Serious: Yes (Death, Hospitalization)
  Sender: FDA-Public Use
  Company Number: MX-IMPAX LABORATORIES, INC-2017-IPXL-02652

PATIENT
  Age: 72 Year
  Sex: Female

DRUGS (2)
  1. GLIBENCLAMIDE [Concomitant]
     Active Substance: GLYBURIDE
     Indication: TYPE 2 DIABETES MELLITUS
     Dosage: 5 MG, EVERY 12HR
     Route: 065
  2. METFORMIN HYDROCHLORIDE ER [Suspect]
     Active Substance: METFORMIN HYDROCHLORIDE
     Indication: TYPE 2 DIABETES MELLITUS
     Dosage: 850 MG, EVERY 12HR
     Route: 065

REACTIONS (6)
  - Septic shock [Unknown]
  - Hepatic artery thrombosis [Unknown]
  - Acute kidney injury [Unknown]
  - Hepatic infarction [Unknown]
  - Multiple organ dysfunction syndrome [Fatal]
  - Lactic acidosis [Unknown]
